FAERS Safety Report 24561120 (Version 1)
Quarter: 2024Q4

REPORT INFORMATION
  Report Type: Spontaneous
  Country: TR (occurrence: TR)
  Receive Date: 20241029
  Receipt Date: 20241029
  Transmission Date: 20250115
  Serious: Yes (Other)
  Sender: UCB
  Company Number: TR-UCBSA-2024055173

PATIENT
  Age: 38 Year
  Sex: Male

DRUGS (4)
  1. LEVETIRACETAM [Suspect]
     Active Substance: LEVETIRACETAM
     Indication: Epilepsy
     Dosage: 500 MILLIGRAM, 2X/DAY (BID)
  2. CARBAMAZEPINE [Suspect]
     Active Substance: CARBAMAZEPINE
     Indication: Epilepsy
     Dosage: 400 MILLIGRAM, 2X/DAY (BID)
  3. TRIENTINE [Concomitant]
     Active Substance: TRIENTINE
     Indication: Hepato-lenticular degeneration
     Dosage: 500 MILLIGRAM, 2X/DAY (BID)
  4. ZINC [Concomitant]
     Active Substance: ZINC
     Indication: Hepato-lenticular degeneration
     Dosage: 150 MILLIGRAM, 2X/DAY (BID)

REACTIONS (2)
  - Seizure [Unknown]
  - Multiple-drug resistance [Unknown]
